FAERS Safety Report 9936322 (Version 1)
Quarter: 2014Q1

REPORT INFORMATION
  Report Type: Spontaneous
  Country: US (occurrence: US)
  Receive Date: 20140228
  Receipt Date: 20140228
  Transmission Date: 20141002
  Serious: No
  Sender: FDA-Public Use
  Company Number: US-AMGEN-USASP2014001246

PATIENT
  Age: 64 Year
  Sex: Female
  Weight: 74.38 kg

DRUGS (10)
  1. ENBREL [Suspect]
     Indication: RHEUMATOID ARTHRITIS
     Dosage: 50 MG, QWK
     Route: 058
     Dates: start: 2012
  2. TREXALL [Concomitant]
     Dosage: UNK
  3. HYDROXYCHLOROQUINE [Concomitant]
     Dosage: UNK
  4. CELEBREX [Concomitant]
     Dosage: UNK
  5. WELCHOL [Concomitant]
     Dosage: UNK
  6. ZETIA [Concomitant]
     Dosage: UNK
  7. CENTRUM SILVER                     /07431401/ [Concomitant]
     Dosage: UNK
  8. LOSARTAN [Concomitant]
     Dosage: UNK
  9. CALCIUM WITH VITAMIN D             /00944201/ [Concomitant]
     Dosage: UNK
  10. VITAMIN D                          /00318501/ [Concomitant]
     Dosage: UNK

REACTIONS (3)
  - Rubber sensitivity [Unknown]
  - Injection site erythema [Unknown]
  - Injection site discolouration [Unknown]
